FAERS Safety Report 7961659-5 (Version None)
Quarter: 2011Q4

REPORT INFORMATION
  Report Type: 
  Country: None (occurrence: None)
  Receive Date: 20111121
  Receipt Date: 20110922
  Transmission Date: 20120403
  Serious: No
  Sender: FDA-Public Use
  Company Number: 1000024179

PATIENT
  Age: 34 Year
  Sex: Female

DRUGS (3)
  1. VIIBRYD [Suspect]
     Indication: DEPRESSION
     Dosage: 10 MG (10 MG, 1 IN 1 D), ORAL,20 MG (20 MG, 1 IN 1 D), ORAL
     Route: 048
     Dates: start: 20110901, end: 20110901
  2. VIIBRYD [Suspect]
     Indication: DEPRESSION
     Dosage: 10 MG (10 MG, 1 IN 1 D), ORAL,20 MG (20 MG, 1 IN 1 D), ORAL
     Route: 048
     Dates: start: 20110901, end: 20110901
  3. PHENTERMINE (PHENTERMINE) PHENTERMINE) [Concomitant]

REACTIONS (3)
  - PARAESTHESIA [None]
  - INSOMNIA [None]
  - PAIN IN EXTREMITY [None]
